FAERS Safety Report 8549489-7 (Version None)
Quarter: 2012Q3

REPORT INFORMATION
  Report Type: 
  Country: None (occurrence: None)
  Receive Date: 20120730
  Receipt Date: 20100329
  Transmission Date: 20120928
  Serious: Yes (Life-Threatening, Other)
  Sender: FDA-Public Use
  Company Number: AU-ROCHE-1090779

PATIENT

DRUGS (2)
  1. AVASTIN [Suspect]
     Dates: start: 20120101
  2. AVASTIN [Suspect]
     Indication: PRODUCT USED FOR UNKNOWN INDICATION
     Dates: end: 20090901

REACTIONS (2)
  - POST PROCEDURAL COMPLICATION [None]
  - THROMBOSIS [None]
